FAERS Safety Report 6576849-6 (Version None)
Quarter: 2010Q1

REPORT INFORMATION
  Report Type: 
  Country: None (occurrence: None)
  Receive Date: 20100210
  Receipt Date: 20100208
  Transmission Date: 20100710
  Serious: Yes (Death, Hospitalization)
  Sender: FDA-Public Use
  Company Number: A0782324A

PATIENT
  Age: 68 Year
  Sex: Female
  Weight: 76.4 kg

DRUGS (1)
  1. AVANDIA [Suspect]
     Dosage: 4MG PER DAY
     Route: 048
     Dates: start: 20000720, end: 20040424

REACTIONS (6)
  - ARTERIOSCLEROSIS [None]
  - CARDIAC ARREST [None]
  - CAROTID ARTERY DISEASE [None]
  - CEREBROVASCULAR ACCIDENT [None]
  - CEREBROVASCULAR DISORDER [None]
  - ISCHAEMIC CARDIOMYOPATHY [None]
